FAERS Safety Report 9605137 (Version 5)
Quarter: 2015Q1

REPORT INFORMATION
  Report Type: Spontaneous
  Country: US (occurrence: US)
  Receive Date: 20131008
  Receipt Date: 20150210
  Transmission Date: 20150721
  Serious: Yes (Hospitalization, Other)
  Sender: FDA-Public Use
  Company Number: US-009507513-1310USA000285

PATIENT
  Sex: Female
  Weight: 43.54 kg

DRUGS (5)
  1. FOSAMAX [Suspect]
     Active Substance: ALENDRONATE SODIUM
     Indication: OSTEOPENIA
     Dosage: 70 MG, UNK
     Route: 048
     Dates: end: 20100117
  2. FOSAMAX PLUS D [Suspect]
     Active Substance: ALENDRONATE SODIUM\CHOLECALCIFEROL
     Indication: OSTEOPENIA
     Route: 048
  3. ALENDRONATE SODIUM. [Suspect]
     Active Substance: ALENDRONATE SODIUM
     Indication: OSTEOPENIA
     Dosage: 70 MG, UNK
     Route: 048
     Dates: start: 20090811
  4. HORMONES (UNSPECIFIED) [Concomitant]
     Active Substance: UNSPECIFIED INGREDIENT
     Dosage: UNK
     Dates: start: 1993, end: 2001
  5. FOSAMAX [Suspect]
     Active Substance: ALENDRONATE SODIUM
     Dosage: UNK

REACTIONS (10)
  - Intramedullary rod insertion [Unknown]
  - Pain in extremity [Unknown]
  - Breast cancer [Unknown]
  - Blood cholesterol increased [Unknown]
  - Femur fracture [Unknown]
  - Electrocardiogram T wave abnormal [Unknown]
  - Mastectomy [Unknown]
  - Rib fracture [Recovered/Resolved]
  - Osteoporosis [Unknown]
  - Body height decreased [Unknown]

NARRATIVE: CASE EVENT DATE: 2000
